FAERS Safety Report 13745750 (Version 4)
Quarter: 2024Q3

REPORT INFORMATION
  Report Type: Spontaneous
  Country: JP (occurrence: JP)
  Receive Date: 20170712
  Receipt Date: 20240829
  Transmission Date: 20241017
  Serious: Yes (Life-Threatening, Other)
  Sender: PFIZER
  Company Number: JP-MLMSERVICE-20170630-0786671-1

PATIENT
  Age: 72 Year
  Sex: Male

DRUGS (2)
  1. CISPLATIN [Suspect]
     Active Substance: CISPLATIN
     Indication: Lung squamous cell carcinoma stage III
     Dosage: 40 MG/M2, CYCLIC (DAYS 1 AND 8)
  2. DOCETAXEL [Suspect]
     Active Substance: DOCETAXEL\DOCETAXEL ANHYDROUS
     Indication: Lung squamous cell carcinoma stage III
     Dosage: 30 MG/M2, CYCLIC (DAYS 1 AND 8)

REACTIONS (3)
  - Oesophagobronchial fistula [Recovering/Resolving]
  - Tumour necrosis [Recovering/Resolving]
  - Mucosal disorder [Recovering/Resolving]
